FAERS Safety Report 12964614 (Version 1)
Quarter: 2016Q4

REPORT INFORMATION
  Report Type: Spontaneous
  Country: VE (occurrence: VE)
  Receive Date: 20161122
  Receipt Date: 20161122
  Transmission Date: 20170207
  Serious: Yes (Other)
  Sender: FDA-Public Use
  Company Number: PHHY2016VE160163

PATIENT
  Sex: Female

DRUGS (3)
  1. FORADIL [Suspect]
     Active Substance: FORMOTEROL FUMARATE
     Indication: ASTHMA
     Dosage: 12 UG, QD
     Route: 055
  2. FORADIL [Suspect]
     Active Substance: FORMOTEROL FUMARATE
     Dosage: UNK, QOD
     Route: 055
  3. ONBREZ BREEZHALER [Suspect]
     Active Substance: INDACATEROL
     Indication: ASTHMA
     Dosage: UNK, QOD OR Q72H
     Route: 055

REACTIONS (6)
  - Inappropriate schedule of drug administration [Unknown]
  - Product use issue [Unknown]
  - Asthmatic crisis [Unknown]
  - Wheezing [Unknown]
  - Chest pain [Unknown]
  - Cough [Unknown]
